FAERS Safety Report 10029708 (Version 1)
Quarter: 2014Q1

REPORT INFORMATION
  Report Type: Spontaneous
  Country: US (occurrence: None)
  Receive Date: 20140321
  Receipt Date: 20140321
  Transmission Date: 20141002
  Serious: Yes (Other)
  Sender: FDA-Public Use
  Company Number: None

PATIENT
  Age: 60 Year
  Sex: Female

DRUGS (2)
  1. DULOXETINE 60 MG TEVA [Suspect]
     Dates: start: 201308, end: 201401
  2. PRESTIQ [Concomitant]

REACTIONS (2)
  - Product substitution issue [None]
  - Condition aggravated [None]
